FAERS Safety Report 25248335 (Version 2)
Quarter: 2025Q3

REPORT INFORMATION
  Report Type: Spontaneous
  Country: US (occurrence: US)
  Receive Date: 20250429
  Receipt Date: 20250712
  Transmission Date: 20251020
  Serious: No
  Sender: STALLERGENES
  Company Number: US-STALCOR-2025-AER-00961

PATIENT
  Age: 10 Year
  Sex: Male
  Weight: 31.3 kg

DRUGS (2)
  1. PALFORZIA [Suspect]
     Active Substance: PEANUT
     Indication: Food allergy
     Dosage: LEVEL 1 AT 3MG- STARTED AT HOME ON 04-MAR-2025 (REACTIVE DOSE ADMINISTERED ON 10-MAR-2025)
     Route: 048
     Dates: start: 20250304
  2. PALFORZIA [Suspect]
     Active Substance: PEANUT
     Dosage: DOSE REDUCED TO 1 MG ON 10-MAR-2025 IN RESPONSE TO REPORTED AE^S AND PALFORZIA WAS DISCONTINUED ON 2
     Route: 048
     Dates: start: 20250310, end: 20250326

REACTIONS (5)
  - Diarrhoea [Recovered/Resolved]
  - Nausea [Recovered/Resolved]
  - Vomiting [Recovered/Resolved]
  - Abdominal pain [Recovered/Resolved]
  - Therapy cessation [Recovered/Resolved]

NARRATIVE: CASE EVENT DATE: 20250310
